APPROVED DRUG PRODUCT: GLATIRAMER ACETATE
Active Ingredient: GLATIRAMER ACETATE
Strength: 40MG/ML
Dosage Form/Route: INJECTABLE;SUBCUTANEOUS
Application: A214741 | Product #002 | TE Code: AP
Applicant: SCINOPHARM TAIWAN LTD
Approved: Dec 31, 2025 | RLD: No | RS: No | Type: RX